FAERS Safety Report 6012236-7 (Version None)
Quarter: 2008Q4

REPORT INFORMATION
  Report Type: 
  Country: None (occurrence: None)
  Receive Date: 20081216
  Receipt Date: 20080107
  Transmission Date: 20090506
  Serious: Yes (Death)
  Sender: FDA-Public Use
  Company Number: US-WYE-H02014708

PATIENT
  Age: 46 Year
  Sex: Female

DRUGS (2)
  1. EFFEXOR XR [Suspect]
     Indication: DEPRESSION
     Dosage: 150 MG 1X PER 1 DAY, ORAL
     Route: 048
     Dates: end: 20071027
  2. CYMBALTA [Concomitant]

REACTIONS (2)
  - COMPLETED SUICIDE [None]
  - INSOMNIA [None]
